FAERS Safety Report 5496195-1 (Version None)
Quarter: 2007Q4

REPORT INFORMATION
  Report Type: 
  Country: None (occurrence: None)
  Receive Date: 20071025
  Receipt Date: 20071022
  Transmission Date: 20080405
  Serious: Yes (Hospitalization, Other)
  Sender: FDA-Public Use
  Company Number: US-BRISTOL-MYERS SQUIBB COMPANY-13950845

PATIENT
  Age: 36 Year
  Sex: Male

DRUGS (4)
  1. BUSPIRONE HCL [Suspect]
  2. TRAZODONE HCL [Suspect]
  3. BUPROPION HCL [Suspect]
  4. ETHANOL [Suspect]

REACTIONS (2)
  - ELECTROCARDIOGRAM QT PROLONGED [None]
  - OVERDOSE [None]
